FAERS Safety Report 19475890 (Version 2)
Quarter: 2021Q3

REPORT INFORMATION
  Report Type: Spontaneous
  Country: US (occurrence: US)
  Receive Date: 20210630
  Receipt Date: 20210709
  Transmission Date: 20211014
  Serious: No
  Sender: FDA-Public Use
  Company Number: US-TEVA-2021-US-1926368

PATIENT
  Age: 60 Year
  Sex: Female

DRUGS (1)
  1. DIAZEPAM. [Suspect]
     Active Substance: DIAZEPAM
     Dosage: 4 WEEKS
     Route: 065
     Dates: start: 2021

REACTIONS (5)
  - Scratch [Unknown]
  - Swelling [Unknown]
  - Contusion [Unknown]
  - Middle insomnia [Unknown]
  - Pruritus [Unknown]

NARRATIVE: CASE EVENT DATE: 2021
